FAERS Safety Report 21375155 (Version 1)
Quarter: 2022Q3

REPORT INFORMATION
  Report Type: Spontaneous
  Country: IT (occurrence: IT)
  Receive Date: 20220926
  Receipt Date: 20220926
  Transmission Date: 20221026
  Serious: Yes (Hospitalization)
  Sender: FDA-Public Use
  Company Number: None

PATIENT
  Age: 69 Year
  Sex: Female

DRUGS (11)
  1. RIFADIN [Suspect]
     Active Substance: RIFAMPIN
     Dosage: 600 MG, QD
     Route: 048
     Dates: start: 20220715, end: 20220816
  2. DALBAVANCIN HYDROCHLORIDE [Suspect]
     Active Substance: DALBAVANCIN HYDROCHLORIDE
     Dosage: 1500 MG, 1X (A SINGLE ADMINISTRATION WAS PERFORMED)
     Route: 041
     Dates: start: 20220810, end: 20220810
  3. DECADRON [Concomitant]
     Active Substance: DEXAMETHASONE
     Dosage: 4 MG, QD
     Route: 041
     Dates: start: 20220715, end: 20220816
  4. TAVOR (LORAZEPAM) [Concomitant]
     Active Substance: LORAZEPAM
     Dosage: 1 MG, QD
     Route: 048
     Dates: start: 20220721
  5. OXACILLIN SODIUM [Concomitant]
     Active Substance: OXACILLIN SODIUM
     Dosage: 12 G, QD
     Route: 041
     Dates: start: 20220715, end: 20220809
  6. LYRICA [Concomitant]
     Active Substance: PREGABALIN
     Dosage: 75 MG, Q12H
     Route: 048
     Dates: start: 20220714
  7. KCL [Concomitant]
     Active Substance: POTASSIUM CHLORIDE
     Dosage: 600 MG, Q8H
     Route: 048
     Dates: start: 20220721, end: 20220824
  8. ENOXAPARIN SODIUM [Concomitant]
     Active Substance: ENOXAPARIN SODIUM
     Dosage: 4000 IU, QD
     Route: 058
     Dates: start: 20220714
  9. IBUPROFEN [Concomitant]
     Active Substance: IBUPROFEN
     Dosage: 600 MG, QD
     Route: 048
     Dates: start: 20220805
  10. NALOXONE HYDROCHLORIDE\OXYCODONE HYDROCHLORIDE [Concomitant]
     Active Substance: NALOXONE HYDROCHLORIDE\OXYCODONE HYDROCHLORIDE
     Dosage: 2 DF, QD (2 TABLET DAY)
     Route: 048
     Dates: start: 20220714
  11. PANTOPRAZOLE SODIUM [Concomitant]
     Active Substance: PANTOPRAZOLE SODIUM
     Dosage: 20 MG, QD
     Route: 048
     Dates: start: 20220716

REACTIONS (4)
  - Rash maculo-papular [Recovering/Resolving]
  - Rash maculo-papular [Not Recovered/Not Resolved]
  - Rash maculo-papular [Recovering/Resolving]
  - Pruritus [Recovering/Resolving]

NARRATIVE: CASE EVENT DATE: 20220717
